FAERS Safety Report 17600563 (Version 1)
Quarter: 2020Q1

REPORT INFORMATION
  Report Type: Report from Study
  Country: GB (occurrence: GB)
  Receive Date: 20200330
  Receipt Date: 20200330
  Transmission Date: 20200409
  Serious: Yes (Other)
  Sender: FDA-Public Use
  Company Number: NVSC2020GB086984

PATIENT
  Sex: Female

DRUGS (2)
  1. COSENTYX [Suspect]
     Active Substance: SECUKINUMAB
     Indication: PSORIATIC ARTHROPATHY
     Dosage: 150 MG, QW (LOADING DOSE:WEEKLY 0,1,2,3)
     Route: 058
     Dates: start: 20191210
  2. COSENTYX [Suspect]
     Active Substance: SECUKINUMAB
     Dosage: 300 MG, QMO (MAINTENANCE DOSE FROM WEEK 4:300 MG HENCEFORTH MONTHLY)
     Route: 058

REACTIONS (2)
  - Corona virus infection [Unknown]
  - Nasopharyngitis [Unknown]
